FAERS Safety Report 9844973 (Version 1)
Quarter: 2014Q1

REPORT INFORMATION
  Report Type: Spontaneous
  Country: JP (occurrence: JP)
  Receive Date: 20140127
  Receipt Date: 20140127
  Transmission Date: 20141002
  Serious: Yes (Other)
  Sender: FDA-Public Use
  Company Number: JP-MYLANLABS-2014S1001071

PATIENT
  Age: 27 Year
  Sex: Female

DRUGS (2)
  1. PHENOBARBITAL [Suspect]
     Route: 065
  2. PREDNISOLONE [Suspect]
     Route: 065

REACTIONS (2)
  - Drug reaction with eosinophilia and systemic symptoms [Recovered/Resolved]
  - Alopecia [Recovered/Resolved]
